FAERS Safety Report 10080568 (Version 3)
Quarter: 2014Q3

REPORT INFORMATION
  Report Type: Spontaneous
  Country: JP (occurrence: JP)
  Receive Date: 20140416
  Receipt Date: 20140801
  Transmission Date: 20150326
  Serious: Yes (Other)
  Sender: FDA-Public Use
  Company Number: JP-BAYER-2013-136394

PATIENT
  Age: 61 Year
  Sex: Male

DRUGS (2)
  1. VITAMIN C [Suspect]
     Active Substance: ASCORBIC ACID
  2. STIVARGA [Suspect]
     Active Substance: REGORAFENIB
     Indication: GASTROINTESTINAL STROMAL TUMOUR
     Dosage: 160 MG, QD
     Route: 048
     Dates: start: 20131004, end: 20140612

REACTIONS (5)
  - Renal failure [Not Recovered/Not Resolved]
  - Oedema [Not Recovered/Not Resolved]
  - Ascites [Not Recovered/Not Resolved]
  - Palmar-plantar erythrodysaesthesia syndrome [Recovering/Resolving]
  - Rash [Recovering/Resolving]

NARRATIVE: CASE EVENT DATE: 201310
